FAERS Safety Report 7236806-3 (Version None)
Quarter: 2011Q1

REPORT INFORMATION
  Report Type: 
  Country: None (occurrence: None)
  Receive Date: 20110120
  Receipt Date: 20110110
  Transmission Date: 20110831
  Serious: No
  Sender: FDA-Public Use
  Company Number: US-B.I. PHARMACEUTICALS,INC./RIDGEFIELD-2010-BP-13614BP

PATIENT
  Sex: Male

DRUGS (14)
  1. LISINOPRIL [Concomitant]
     Indication: HYPERTENSION
     Dosage: 60 MG
     Route: 048
     Dates: start: 19600101
  2. M.V.I. [Concomitant]
  3. VIT C [Concomitant]
  4. ALPRAZOLAM [Concomitant]
     Indication: CARDIAC DISORDER
     Dosage: 0.5 MG
     Route: 048
     Dates: start: 20050101
  5. PRADAXA [Suspect]
     Indication: ATRIAL FIBRILLATION
     Dosage: 300 MG
     Route: 048
     Dates: start: 20101115
  6. CASODEX [Concomitant]
     Indication: PROSTATE CANCER
     Dosage: 50 MG
     Route: 048
     Dates: start: 19930101
  7. MAGNESIUM OXIDE [Concomitant]
     Dosage: 64 MG
     Route: 048
     Dates: start: 20060101
  8. DARVOCET-N 100 [Concomitant]
     Indication: ARTHRITIS
  9. POTASSIUM [Concomitant]
  10. PROSTON [Concomitant]
     Route: 048
     Dates: start: 20050101
  11. LIPITOR [Concomitant]
     Indication: BLOOD CHOLESTEROL INCREASED
     Route: 048
     Dates: start: 19600101
  12. ASPIRIN [Concomitant]
     Indication: CARDIAC DISORDER
     Route: 048
     Dates: start: 19600101
  13. LUPRON [Concomitant]
     Indication: PROSTATE CANCER
     Dates: start: 19930101
  14. SLEEPING PILL [Concomitant]
     Indication: INSOMNIA

REACTIONS (8)
  - RENAL PAIN [None]
  - ABDOMINAL DISCOMFORT [None]
  - NAUSEA [None]
  - ASTHENIA [None]
  - SOMNOLENCE [None]
  - FAECES DISCOLOURED [None]
  - RED BLOOD CELLS URINE POSITIVE [None]
  - BLOOD URINE PRESENT [None]
